FAERS Safety Report 7398890-6 (Version None)
Quarter: 2011Q2

REPORT INFORMATION
  Report Type: 
  Country: None (occurrence: None)
  Receive Date: 20110407
  Receipt Date: 20110324
  Transmission Date: 20111010
  Serious: Yes (Death)
  Sender: FDA-Public Use
  Company Number: US-CELGENEUS-163-21880-11030577

PATIENT
  Sex: Male
  Weight: 70.052 kg

DRUGS (16)
  1. LEVOTHYROXINE [Concomitant]
     Dosage: 150 MICROGRAM
     Route: 048
     Dates: start: 20090616
  2. AZITHROMYCIN [Concomitant]
     Dosage: 250 MILLIGRAM
     Route: 048
     Dates: start: 20110208
  3. ONDANSETRON [Concomitant]
     Dosage: 8 MILLIGRAM
     Route: 048
     Dates: start: 20110215
  4. TIOTROPIUM BROMIDE [Concomitant]
     Dosage: 1
     Route: 055
     Dates: start: 20091207
  5. LORAZEPAM [Concomitant]
     Indication: NAUSEA
     Dosage: 0.5-1MG
     Route: 048
     Dates: start: 20100511
  6. MORPHINE [Concomitant]
     Dosage: 20MG/ML
     Route: 048
     Dates: start: 20110215
  7. ARISTOCORT R [Concomitant]
     Route: 061
     Dates: start: 20100215
  8. FENTANYL [Concomitant]
     Dosage: 12 MICROGRAM
     Route: 062
     Dates: start: 20110215
  9. ACETAMINOPHEN AND HYDROCODONE BITARTRATE [Concomitant]
     Dosage: 5/500
     Route: 048
  10. FLOVENT HFA [Concomitant]
     Dosage: 110 MICROGRAM
     Route: 055
     Dates: start: 20090915
  11. ALBUTEROL SULFATE [Concomitant]
     Dosage: 2
     Route: 055
     Dates: start: 20091123
  12. OXYGEN [Concomitant]
     Dosage: 2MG/1ML
     Route: 048
     Dates: start: 20110221
  13. REVLIMID [Suspect]
     Dosage: 10 MILLIGRAM
     Route: 048
     Dates: start: 20100330, end: 20100528
  14. LORAZEPAM [Concomitant]
     Dosage: 2MG/1ML
     Route: 048
     Dates: start: 20110221
  15. DEXAMETHASONE [Concomitant]
     Dosage: 4 MILLIGRAM
     Route: 048
     Dates: start: 20110215
  16. OXYGEN [Concomitant]
     Indication: NAUSEA
     Route: 055
     Dates: start: 20110103

REACTIONS (1)
  - MYELODYSPLASTIC SYNDROME [None]
